FAERS Safety Report 4625621-2 (Version None)
Quarter: 2005Q1

REPORT INFORMATION
  Report Type: 
  Country: None (occurrence: None)
  Receive Date: 20050330
  Receipt Date: 20050315
  Transmission Date: 20050727
  Serious: Yes (Hospitalization, Other)
  Sender: FDA-Public Use
  Company Number: EWC050343188

PATIENT
  Age: 53 Year
  Sex: Male

DRUGS (6)
  1. PERMAX [Suspect]
     Indication: PARKINSON'S DISEASE
     Dates: start: 19950101, end: 20041101
  2. MADOPARK QUICK [Concomitant]
  3. SINEMET DEPOT [Concomitant]
  4. PLENDIL [Concomitant]
  5. INDERAL [Concomitant]
  6. COMTESS (ENTACAPONE) [Concomitant]

REACTIONS (6)
  - AORTIC DILATATION [None]
  - AORTIC VALVE INCOMPETENCE [None]
  - ATRIAL FIBRILLATION [None]
  - DILATATION ATRIAL [None]
  - DILATATION VENTRICULAR [None]
  - VENTRICULAR HYPOKINESIA [None]
